FAERS Safety Report 8133292-6 (Version None)
Quarter: 2012Q1

REPORT INFORMATION
  Report Type: 
  Country: None (occurrence: None)
  Receive Date: 20120207
  Receipt Date: 20120123
  Transmission Date: 20120608
  Serious: Yes (Hospitalization)
  Sender: FDA-Public Use
  Company Number: GB-DEXPHARM-20120022

PATIENT
  Age: 68 Year
  Sex: Female

DRUGS (1)
  1. OMEPRAZOLE [Suspect]
     Indication: GASTROOESOPHAGEAL REFLUX DISEASE
     Dosage: 10 MG MILLIGRAM(S) 1 IN 1 D; 20 ME MILLIGRAM(S) 1 IN 1 D
     Route: 048
     Dates: start: 20111030

REACTIONS (5)
  - DEHYDRATION [None]
  - DIARRHOEA [None]
  - NO THERAPEUTIC RESPONSE [None]
  - VOMITING [None]
  - ILEAL STENOSIS [None]
